FAERS Safety Report 25967561 (Version 2)
Quarter: 2025Q4

REPORT INFORMATION
  Report Type: Report from Study
  Country: US (occurrence: US)
  Receive Date: 20251028
  Receipt Date: 20251118
  Transmission Date: 20260117
  Serious: Yes (Other)
  Sender: TAKEDA
  Company Number: US-TAKEDA-2024TUS106737

PATIENT
  Sex: Female
  Weight: 62 kg

DRUGS (5)
  1. TEDUGLUTIDE [Suspect]
     Active Substance: TEDUGLUTIDE
     Indication: Blindness unilateral
     Dosage: 3.1 MILLIGRAM, QD
     Dates: start: 202408
  2. TEDUGLUTIDE [Suspect]
     Active Substance: TEDUGLUTIDE
     Indication: Insomnia
     Dosage: 3.1 MILLIGRAM, QD
  3. TEDUGLUTIDE [Suspect]
     Active Substance: TEDUGLUTIDE
     Indication: Malabsorption
     Dosage: 3.1 MILLIGRAM, QD
  4. TEDUGLUTIDE [Suspect]
     Active Substance: TEDUGLUTIDE
     Dosage: 3.2 MILLIGRAM, QD
  5. TEDUGLUTIDE [Suspect]
     Active Substance: TEDUGLUTIDE
     Dosage: 3.2 MILLIGRAM, QD

REACTIONS (10)
  - Transient ischaemic attack [Unknown]
  - Off label use [Unknown]
  - Product dose omission issue [Unknown]
  - Pouchitis [Unknown]
  - Constipation [Unknown]
  - Abdominal pain upper [Recovered/Resolved]
  - Insomnia [Unknown]
  - Abdominal pain [Unknown]
  - Gastrointestinal disorder [Unknown]
  - Vomiting [Unknown]

NARRATIVE: CASE EVENT DATE: 20240801
